FAERS Safety Report 17427219 (Version 1)
Quarter: 2020Q1

REPORT INFORMATION
  Report Type: Spontaneous
  Country: LT (occurrence: LT)
  Receive Date: 20200218
  Receipt Date: 20200218
  Transmission Date: 20200409
  Serious: Yes (Life-Threatening, Hospitalization)
  Sender: FDA-Public Use
  Company Number: LT-TEVA-2020-LT-1187425

PATIENT
  Age: 30 Year
  Sex: Male

DRUGS (1)
  1. VERAPAMIL [Suspect]
     Active Substance: VERAPAMIL HYDROCHLORIDE
     Indication: SELF-MEDICATION
     Dosage: 800 MG
     Route: 048

REACTIONS (2)
  - Acidosis [Recovered/Resolved]
  - Shock [Recovered/Resolved]
